FAERS Safety Report 9966560 (Version 2)
Quarter: 2014Q1

REPORT INFORMATION
  Report Type: Report from Study
  Country: PR (occurrence: PR)
  Receive Date: 20140305
  Receipt Date: 20140305
  Transmission Date: 20141002
  Serious: No
  Sender: FDA-Public Use
  Company Number: PR-ABBVIE-13P-131-1039811-00

PATIENT
  Sex: Male
  Weight: 78.09 kg

DRUGS (3)
  1. HUMIRA [Suspect]
     Indication: PSORIASIS
     Route: 058
     Dates: start: 2012
  2. METFORMIN [Concomitant]
     Indication: DIABETES MELLITUS
     Route: 048
  3. ALTACE [Concomitant]
     Indication: HYPERTENSION
     Route: 048

REACTIONS (1)
  - Nasopharyngitis [Recovered/Resolved]
